FAERS Safety Report 7268440 (Version 2)
Quarter: 2013Q1

REPORT INFORMATION
  Report Type: Report from Study
  Country: JP (occurrence: JP)
  Receive Date: 20100202
  Receipt Date: 20130131
  Transmission Date: 20140127
  Serious: Yes (Hospitalization)
  Sender: FDA-Public Use
  Company Number: JP-ROCHE-676148

PATIENT
  Age: 73 Year
  Sex: Female

DRUGS (24)
  1. TOCILIZUMAB [Suspect]
     Indication: RHEUMATOID ARTHRITIS
     Route: 041
     Dates: start: 20090605, end: 20090605
  2. TOCILIZUMAB [Suspect]
     Route: 041
     Dates: start: 20090703, end: 20090703
  3. TOCILIZUMAB [Suspect]
     Route: 041
     Dates: start: 20090731, end: 20090731
  4. TOCILIZUMAB [Suspect]
     Route: 041
     Dates: start: 20090828, end: 20090828
  5. TOCILIZUMAB [Suspect]
     Route: 041
     Dates: start: 20090925, end: 20090925
  6. TOCILIZUMAB [Suspect]
     Route: 041
     Dates: start: 20091023, end: 20091023
  7. TOCILIZUMAB [Suspect]
     Route: 041
     Dates: start: 20091209, end: 20091209
  8. TOCILIZUMAB [Suspect]
     Route: 041
  9. ISONIAZID [Suspect]
     Indication: ANTIBIOTIC PROPHYLAXIS
     Dosage: DRUG REPORTED AS: ISCOTIN(ISONIAZID)
     Route: 048
  10. METHOTREXATE [Concomitant]
     Route: 048
  11. ISCOTIN [Concomitant]
     Route: 048
  12. PREDNISOLONE [Concomitant]
     Dosage: DOSE FORM: ORAL FORMULATION (NOT OTHERWISE SPECIFIED)
     Route: 048
  13. PREDNISOLONE [Concomitant]
     Dosage: DOSE FORM: ORAL FORMULATION (NOT OTHERWISE SPECIFIED)
     Route: 048
     Dates: start: 20090704, end: 20090731
  14. PREDNISOLONE [Concomitant]
     Dosage: DOSE FORM: ORAL FORMULATION (NOT OTHERWISE SPECIFIED)
     Route: 048
     Dates: start: 20090801, end: 20090828
  15. PREDNISOLONE [Concomitant]
     Route: 048
     Dates: start: 20090829, end: 20090925
  16. PREDNISOLONE [Concomitant]
     Dosage: DOSE FORM: ORAL FORMULATION (NOT OTHERWISE SPECIFIED)
     Route: 048
  17. AMLODIN [Concomitant]
     Dosage: DRUG NAME: AMLODIPINE BESILATE
     Route: 048
  18. ALENDRONATE SODIUM [Concomitant]
     Dosage: DRUG NAME: FOSAMAC 35MG(ALENDRONATE SODIUM HYDRATE)
     Route: 048
  19. BEPOTASTINE [Concomitant]
     Dosage: DRUG NAME REPORTED AS TALION OD(BEPOTASTINE BESILATE)
     Route: 048
  20. CLARITHROMYCIN [Concomitant]
     Dosage: DOSE FORM: ORAL FORMULATION (NOT OTHERWISE SPECIFIED)
     Route: 048
  21. CYTOTEC [Concomitant]
     Route: 048
  22. INDOMETACIN [Concomitant]
     Dosage: DOSE FORM: ORAL FORMULATION (NOT OTHERWISE SPECIFIED)
     Route: 048
  23. VITAMINS AND MINERALS [Concomitant]
     Route: 048
  24. LANSOPRAZOLE [Concomitant]
     Dosage: DRUG REPORTED AS: TAPIZOL(LANSOPRAZOLE)
     Route: 048

REACTIONS (4)
  - Pneumonia [Recovered/Resolved]
  - Bronchitis [Recovered/Resolved]
  - Blood cholesterol increased [Recovered/Resolved]
  - Liver function test abnormal [Recovered/Resolved]
